FAERS Safety Report 13371133 (Version 1)
Quarter: 2017Q1

REPORT INFORMATION
  Report Type: Spontaneous
  Country: AT (occurrence: AT)
  Receive Date: 20170324
  Receipt Date: 20170324
  Transmission Date: 20170429
  Serious: Yes (Other)
  Sender: FDA-Public Use
  Company Number: AT-PFIZER INC-2017119260

PATIENT
  Sex: Female
  Weight: 78 kg

DRUGS (1)
  1. DEPOCON - FERTIGSPRITZE ( MEDROXYPROGESTERONE ACETATE) [Suspect]
     Active Substance: MEDROXYPROGESTERONE ACETATE
     Indication: CONTRACEPTION
     Dosage: 1 DF, ^TWICE^
     Dates: start: 201610, end: 201702

REACTIONS (4)
  - Malaise [Not Recovered/Not Resolved]
  - Papilloedema [Not Recovered/Not Resolved]
  - Visual acuity reduced [Not Recovered/Not Resolved]
  - Weight increased [Not Recovered/Not Resolved]
